FAERS Safety Report 9997160 (Version 1)
Quarter: 2014Q1

REPORT INFORMATION
  Report Type: Spontaneous
  Country: US (occurrence: None)
  Receive Date: 20140218
  Receipt Date: 20140218
  Transmission Date: 20141002
  Serious: Yes (Other)
  Sender: FDA-Public Use
  Company Number: 1000052217

PATIENT
  Age: 48 Year
  Sex: Male

DRUGS (2)
  1. VIIBRYD [Suspect]
     Indication: ANXIETY
     Route: 048
     Dates: start: 20130915
  2. PROPECIA (FINASTERIDE) (FINASTERIDE) [Concomitant]

REACTIONS (3)
  - Constipation [None]
  - Disturbance in sexual arousal [None]
  - Off label use [None]
